FAERS Safety Report 17064469 (Version 1)
Quarter: 2019Q4

REPORT INFORMATION
  Report Type: Spontaneous
  Country: US (occurrence: US)
  Receive Date: 20191122
  Receipt Date: 20191122
  Transmission Date: 20200122
  Serious: No
  Sender: FDA-Public Use
  Company Number: US-PFIZER INC-2019005199

PATIENT
  Age: 79 Year
  Sex: Female
  Weight: 62.6 kg

DRUGS (1)
  1. TIKOSYN [Suspect]
     Active Substance: DOFETILIDE
     Indication: ATRIAL FIBRILLATION
     Dosage: 125 UG, 2X/DAY (EVERY 12 HOURS/ONCE IN THE MORNING AND ONCE AT NIGHT DAILY)
     Route: 048
     Dates: start: 2002

REACTIONS (1)
  - Therapeutic product effect incomplete [Not Recovered/Not Resolved]
